FAERS Safety Report 7459840-7 (Version None)
Quarter: 2011Q2

REPORT INFORMATION
  Report Type: 
  Country: None (occurrence: None)
  Receive Date: 20110427
  Receipt Date: 20110421
  Transmission Date: 20111010
  Serious: Yes (Life-Threatening, Hospitalization)
  Sender: FDA-Public Use
  Company Number: 2011TJ0007

PATIENT
  Age: 8 Year
  Sex: Male

DRUGS (1)
  1. TWINJECT 0.15 [Suspect]
     Indication: HYPERSENSITIVITY
     Dosage: 0.15 MG,
     Dates: start: 20110420, end: 20110420

REACTIONS (2)
  - PRODUCT QUALITY ISSUE [None]
  - DEVICE MALFUNCTION [None]
